FAERS Safety Report 5321369-X (Version None)
Quarter: 2007Q2

REPORT INFORMATION
  Report Type: 
  Country: None (occurrence: None)
  Receive Date: 20070510
  Receipt Date: 20070501
  Transmission Date: 20071010
  Serious: Yes (Other)
  Sender: FDA-Public Use
  Company Number: US-JNJFOC-20070500832

PATIENT
  Sex: Female
  Weight: 67.13 kg

DRUGS (5)
  1. LEVAQUIN [Suspect]
     Indication: CYSTITIS
     Route: 048
  2. LEVAQUIN [Suspect]
     Indication: SINUSITIS
     Route: 048
  3. HORMONE REPLACEMENT [Concomitant]
     Indication: HORMONE REPLACEMENT THERAPY
     Route: 065
  4. PROTEIN SUPPLEMENTS [Concomitant]
     Route: 065
  5. VITAMINS [Concomitant]
     Route: 065

REACTIONS (3)
  - JOINT SWELLING [None]
  - PAIN [None]
  - TENDON INJURY [None]
